FAERS Safety Report 7814254-2 (Version None)
Quarter: 2011Q4

REPORT INFORMATION
  Report Type: 
  Country: None (occurrence: None)
  Receive Date: 20111011
  Receipt Date: 20110930
  Transmission Date: 20120403
  Serious: Yes (Hospitalization, Other)
  Sender: FDA-Public Use
  Company Number: NSR_00284_2011

PATIENT
  Age: 27 Year
  Sex: Male

DRUGS (1)
  1. TRAMADOL HCL [Suspect]
     Indication: PANIC ATTACK
     Dosage: (1000 MG 1X, 10 TABLETS AT ONCE ORAL)
     Route: 048

REACTIONS (16)
  - ARRHYTHMIA [None]
  - BACK PAIN [None]
  - DISSEMINATED INTRAVASCULAR COAGULATION [None]
  - HAEMODIALYSIS [None]
  - COMPARTMENT SYNDROME [None]
  - ASTHENIA [None]
  - ALANINE AMINOTRANSFERASE INCREASED [None]
  - HYPERKALAEMIA [None]
  - HYPOCALCAEMIA [None]
  - RHABDOMYOLYSIS [None]
  - TOXICITY TO VARIOUS AGENTS [None]
  - HYPOAESTHESIA [None]
  - HEART RATE INCREASED [None]
  - MONOPARESIS [None]
  - ASPARTATE AMINOTRANSFERASE INCREASED [None]
  - RENAL FAILURE [None]
